FAERS Safety Report 17414478 (Version 4)
Quarter: 2022Q2

REPORT INFORMATION
  Report Type: Spontaneous
  Country: US (occurrence: US)
  Receive Date: 20200213
  Receipt Date: 20220425
  Transmission Date: 20220721
  Serious: No
  Sender: FDA-Public Use
  Company Number: US-PFIZER INC-2019501915

PATIENT
  Age: 57 Year
  Sex: Male
  Weight: 106.59 kg

DRUGS (1)
  1. LYRICA [Suspect]
     Active Substance: PREGABALIN
     Indication: Back pain
     Dosage: 150 MG, THRICE DAILY
     Route: 048

REACTIONS (4)
  - Nasopharyngitis [Unknown]
  - Abdominal mass [Unknown]
  - Femoral hernia [Unknown]
  - Frustration tolerance decreased [Unknown]

NARRATIVE: CASE EVENT DATE: 20200101
